FAERS Safety Report 8773008 (Version 2)
Quarter: 2012Q4

REPORT INFORMATION
  Report Type: 
  Country: US (occurrence: US)
  Receive Date: 20120907
  Receipt Date: 20120914
  Transmission Date: 20130627
  Serious: Yes (Other)
  Sender: FDA-Public Use
  Company Number: US-ABBOTT-12P-163-0974372-00

PATIENT
  Age: 54 Year
  Sex: Female

DRUGS (6)
  1. CREON 24 [Suspect]
     Indication: PRODUCT USED FOR UNKNOWN INDICATION
     Dosage: 2 24 per meal
     Dates: start: 20120509, end: 20120809
  2. OPIUM TINCTURE [Concomitant]
     Indication: DIARRHOEA
  3. FLUOXETINE [Concomitant]
     Indication: DEPRESSION
  4. THRYOID MEDICATION [Concomitant]
     Indication: HYPOTHYROIDISM
  5. TRANSDERMAL PROGESTERONE [Concomitant]
     Indication: PRODUCT USED FOR UNKNOWN INDICATION
     Route: 062
  6. TRANSDERMAL ESTADIOL [Concomitant]
     Indication: PRODUCT USED FOR UNKNOWN INDICATION
     Route: 062

REACTIONS (8)
  - Decreased appetite [Recovered/Resolved]
  - Dehydration [Recovered/Resolved]
  - Confusional state [Recovered/Resolved]
  - Asthenia [Recovered/Resolved]
  - Nausea [Recovered/Resolved]
  - Diarrhoea [Recovered/Resolved]
  - Vomiting [Recovered/Resolved]
  - Muscle spasms [Recovered/Resolved]
